FAERS Safety Report 6139508-X (Version None)
Quarter: 2009Q1

REPORT INFORMATION
  Report Type: 
  Country: None (occurrence: None)
  Receive Date: 20090327
  Receipt Date: 20090121
  Transmission Date: 20090719
  Serious: Yes (Other)
  Sender: FDA-Public Use
  Company Number: 8041745

PATIENT
  Age: 45 Year
  Sex: Female

DRUGS (1)
  1. XYZAL [Suspect]
     Dosage: PO
     Route: 048

REACTIONS (1)
  - HYPERSENSITIVITY [None]
